FAERS Safety Report 8707462 (Version 3)
Quarter: 2013Q4

REPORT INFORMATION
  Report Type: Spontaneous
  Country: US (occurrence: US)
  Receive Date: 20120804
  Receipt Date: 20131031
  Transmission Date: 20140711
  Serious: No
  Sender: FDA-Public Use
  Company Number: US-009507513-2012SP031133

PATIENT
  Age: 48 Year
  Sex: Male
  Weight: 79.82 kg

DRUGS (4)
  1. SAPHRIS [Suspect]
     Indication: BIPOLAR DISORDER
     Dosage: 10 MG, BID
     Route: 060
     Dates: start: 201205, end: 20120601
  2. SAPHRIS [Suspect]
     Dosage: 5 MG, BID
     Route: 060
     Dates: start: 20120530, end: 201205
  3. SEROQUEL [Concomitant]
     Dosage: 300 MG, HS
  4. LAMICTAL [Concomitant]
     Dosage: 200 MG, UNK

REACTIONS (1)
  - Dystonia [Recovered/Resolved]
